FAERS Safety Report 21701694 (Version 1)
Quarter: 2022Q4

REPORT INFORMATION
  Report Type: Report from Study
  Country: US (occurrence: US)
  Receive Date: 20221208
  Receipt Date: 20221208
  Transmission Date: 20230112
  Serious: No
  Sender: FDA-Public Use
  Company Number: US-ABBVIE-4183800

PATIENT
  Age: 55 Year
  Sex: Female

DRUGS (2)
  1. HUMIRA [Suspect]
     Active Substance: ADALIMUMAB
     Indication: Rheumatoid arthritis
     Dosage: CITRATE FREE, STRENGTH:40MG, LAST ADMIN DATE:2022
     Route: 058
  2. HUMIRA [Suspect]
     Active Substance: ADALIMUMAB
     Dosage: CITRATE FREE, STRENGTH:40MG, FIRST ADMIN DATE:2022
     Route: 058

REACTIONS (4)
  - Sinusitis [Not Recovered/Not Resolved]
  - Urinary tract infection [Recovering/Resolving]
  - Unevaluable event [Unknown]
  - Ear discomfort [Unknown]

NARRATIVE: CASE EVENT DATE: 20221001
